FAERS Safety Report 5273057-6 (Version None)
Quarter: 2007Q1

REPORT INFORMATION
  Report Type: 
  Country: None (occurrence: None)
  Receive Date: 20070322
  Receipt Date: 20070312
  Transmission Date: 20070707
  Serious: Yes (Hospitalization, Other)
  Sender: FDA-Public Use
  Company Number: BR-PFIZER INC-2006113573

PATIENT
  Sex: Female

DRUGS (5)
  1. XALATAN [Suspect]
     Indication: GLAUCOMA
     Route: 031
  2. GLUCOFORMIN [Concomitant]
     Route: 048
  3. INSULIN HUMAN [Concomitant]
     Route: 058
     Dates: start: 19960901
  4. REGULAR INSULIN [Concomitant]
     Route: 058
     Dates: start: 20050901
  5. ALPHAGAN [Concomitant]
     Route: 048
     Dates: start: 20050901

REACTIONS (7)
  - ABDOMINAL PAIN UPPER [None]
  - EYE OEDEMA [None]
  - EYE PRURITUS [None]
  - GLAUCOMA [None]
  - HEADACHE [None]
  - OEDEMA MOUTH [None]
  - URINARY TRACT INFECTION [None]
